FAERS Safety Report 21139950 (Version 17)
Quarter: 2023Q1

REPORT INFORMATION
  Report Type: Report from Study
  Country: FR (occurrence: None)
  Receive Date: 20220728
  Receipt Date: 20230323
  Transmission Date: 20230417
  Serious: Yes (Life-Threatening, Hospitalization)
  Sender: FDA-Public Use
  Company Number: FR-ROCHE-3146610

PATIENT
  Age: 64 Year
  Sex: Male
  Weight: 55.6 kg

DRUGS (29)
  1. PLACEBO [Suspect]
     Active Substance: UNSPECIFIED INGREDIENT
     Indication: Squamous cell carcinoma of head and neck
     Dosage: ON 01/JUL/2022, RECEIVED MOST RECENT DOSE PRIOR TO AE?ON 22/JUL/2022, RECEIVED MOST RECENT DOSE PRIO
     Route: 042
     Dates: start: 20220429
  2. ATEZOLIZUMAB [Suspect]
     Active Substance: ATEZOLIZUMAB
     Indication: Squamous cell carcinoma of head and neck
     Dosage: ON 01/JUL/2022, RECEIVED MOST RECENT DOSE PRIOR TO AE/SAE (1200MG)
     Route: 041
     Dates: start: 20220429
  3. LYRICA [Concomitant]
     Active Substance: PREGABALIN
     Indication: Pain
     Dates: start: 2010
  4. CYMBALTA [Concomitant]
     Active Substance: DULOXETINE HYDROCHLORIDE
     Indication: Depression
     Dosage: NO
     Dates: start: 2010
  5. ZOPICLONE [Concomitant]
     Active Substance: ZOPICLONE
     Indication: Insomnia
     Dates: start: 2010
  6. FENTANYL [Concomitant]
     Active Substance: FENTANYL
     Indication: Pain
     Dosage: YES
     Dates: start: 20220525
  7. IXPRIM [Concomitant]
     Active Substance: ACETAMINOPHEN\TRAMADOL HYDROCHLORIDE
     Indication: Pain
     Dates: start: 20220616, end: 20220701
  8. IXPRIM [Concomitant]
     Active Substance: ACETAMINOPHEN\TRAMADOL HYDROCHLORIDE
     Indication: Pain
     Dates: start: 2010, end: 20220524
  9. VOGALENE [Concomitant]
     Active Substance: METOPIMAZINE
     Indication: Nausea
     Dates: start: 20220611, end: 20220721
  10. OXYCODONE HYDROCHLORIDE [Concomitant]
     Active Substance: OXYCODONE HYDROCHLORIDE
     Indication: Pain
     Dates: start: 20220612, end: 20220723
  11. TRANXENE [Concomitant]
     Active Substance: CLORAZEPATE DIPOTASSIUM
     Indication: Insomnia
     Dates: start: 2010, end: 202005
  12. AUGMENTIN [Concomitant]
     Active Substance: AMOXICILLIN\CLAVULANATE POTASSIUM
     Indication: Pyrexia
     Dates: start: 20220510, end: 20220513
  13. LAMALINE [Concomitant]
     Indication: Pain
     Dates: start: 20220510, end: 202205
  14. REFRESH CELLUVISC [Concomitant]
     Active Substance: CARBOXYMETHYLCELLULOSE SODIUM
     Indication: Conjunctivitis
     Dates: start: 20220715, end: 202210
  15. KETAMINE [Concomitant]
     Active Substance: KETAMINE
     Indication: Hepatic encephalopathy
     Route: 065
     Dates: start: 20220807, end: 202208
  16. SUCCINYLCHOLINE [Concomitant]
     Active Substance: SUCCINYLCHOLINE
     Indication: Hepatic encephalopathy
     Route: 065
     Dates: start: 20220807, end: 202208
  17. PROPOFOL [Concomitant]
     Active Substance: PROPOFOL
     Indication: Hepatic encephalopathy
     Route: 065
     Dates: start: 202208, end: 20220811
  18. NOREPINEPHRINE [Concomitant]
     Active Substance: NOREPINEPHRINE
     Indication: Hepatic encephalopathy
     Route: 065
     Dates: start: 202208, end: 202208
  19. PIPERACILLIN SODIUM\TAZOBACTAM SODIUM [Concomitant]
     Active Substance: PIPERACILLIN SODIUM\TAZOBACTAM SODIUM
     Indication: Infection prophylaxis
     Route: 065
     Dates: start: 20220807, end: 20220812
  20. DUPHALAC [Concomitant]
     Active Substance: LACTULOSE
     Indication: Hepatic encephalopathy
     Route: 048
     Dates: start: 202208, end: 202208
  21. ALBUMIN HUMAN [Concomitant]
     Active Substance: ALBUMIN HUMAN
     Indication: Hepatic encephalopathy
     Route: 065
     Dates: start: 202208, end: 202208
  22. LOVENOX [Concomitant]
     Active Substance: ENOXAPARIN SODIUM
     Indication: Thrombosis
     Route: 065
     Dates: start: 20220822, end: 20220824
  23. BORIC ACID\SODIUM BORATE [Concomitant]
     Active Substance: BORIC ACID\SODIUM BORATE
     Indication: Conjunctivitis
     Dates: start: 20220723, end: 202210
  24. NEFOPAM [Concomitant]
     Active Substance: NEFOPAM
     Indication: Pain
     Dates: start: 20220722, end: 20220723
  25. PRIMPERAN [Concomitant]
     Active Substance: METOCLOPRAMIDE HYDROCHLORIDE
     Indication: Nausea
     Dates: start: 20220722, end: 20220723
  26. SODIUM CHLORIDE [Concomitant]
     Active Substance: SODIUM CHLORIDE
     Dates: start: 20220722, end: 20220722
  27. SUFENTANIL [Concomitant]
     Active Substance: SUFENTANIL
     Indication: Hepatic encephalopathy
     Dates: start: 202208, end: 20220811
  28. URSODIOL [Concomitant]
     Active Substance: URSODIOL
     Indication: Hepatic encephalopathy
     Route: 048
     Dates: start: 202209
  29. SUFENTANIL [Concomitant]
     Active Substance: SUFENTANIL
     Indication: Hepatic encephalopathy
     Dates: start: 202208, end: 20220811

REACTIONS (8)
  - Hepatic cytolysis [Recovered/Resolved]
  - Cell death [Recovered/Resolved]
  - Jugular vein thrombosis [Recovering/Resolving]
  - Device related thrombosis [Recovering/Resolving]
  - Large intestine perforation [Recovered/Resolved]
  - Sepsis [Recovered/Resolved]
  - Shock haemorrhagic [Recovered/Resolved]
  - Pneumonia aspiration [Recovered/Resolved]

NARRATIVE: CASE EVENT DATE: 20220721
